FAERS Safety Report 13025235 (Version 1)
Quarter: 2016Q4

REPORT INFORMATION
  Report Type: Spontaneous
  Country: JP (occurrence: JP)
  Receive Date: 20161214
  Receipt Date: 20161214
  Transmission Date: 20170207
  Serious: Yes (Death, Hospitalization)
  Sender: FDA-Public Use
  Company Number: JP-ROCHE-1866619

PATIENT
  Age: 66 Year
  Sex: Female

DRUGS (17)
  1. PROGRAF [Concomitant]
     Active Substance: TACROLIMUS\TACROLIMUS ANHYDROUS
     Indication: HEPATIC CIRRHOSIS
     Route: 048
     Dates: start: 201301
  2. SAWACILLIN [Concomitant]
     Active Substance: AMOXICILLIN
     Indication: HEPATIC CIRRHOSIS
     Route: 048
     Dates: start: 20130319
  3. LEVEMIR [Concomitant]
     Active Substance: INSULIN DETEMIR
     Indication: HEPATIC CIRRHOSIS
     Dosage: DOSAGE IS UNCERTAIN.
     Route: 058
  4. CELLCEPT [Suspect]
     Active Substance: MYCOPHENOLATE MOFETIL\MYCOPHENOLATE MOFETIL HYDROCHLORIDE
     Indication: HEPATIC CIRRHOSIS
     Route: 048
     Dates: start: 20140328
  5. VELCADE [Suspect]
     Active Substance: BORTEZOMIB
     Indication: PRODUCT USED FOR UNKNOWN INDICATION
     Route: 065
     Dates: start: 20140508, end: 20140508
  6. EPADEL [Concomitant]
     Active Substance: ICOSAPENT
     Indication: HEPATIC CIRRHOSIS
     Route: 048
     Dates: start: 20140328, end: 20140403
  7. NEXIUM [Concomitant]
     Active Substance: ESOMEPRAZOLE MAGNESIUM
     Indication: HEPATIC CIRRHOSIS
     Route: 048
     Dates: start: 20130214
  8. AMLODIPINE [Concomitant]
     Active Substance: AMLODIPINE BESYLATE
     Indication: HEPATIC CIRRHOSIS
     Route: 048
     Dates: start: 20130228
  9. URSO [Concomitant]
     Active Substance: URSODIOL
     Indication: HEPATIC CIRRHOSIS
     Route: 048
     Dates: start: 201304
  10. RITUXAN [Suspect]
     Active Substance: RITUXIMAB
     Indication: PROPHYLAXIS AGAINST TRANSPLANT REJECTION
     Dosage: THE FRACTIONATION DOSE FREQUENCY IS UNCERTAIN. ?DOSE INTERVAL UNCERTAINTY
     Route: 041
     Dates: start: 20140401
  11. VELCADE [Suspect]
     Active Substance: BORTEZOMIB
     Route: 065
     Dates: start: 20140515, end: 20140515
  12. REBETOL [Concomitant]
     Active Substance: RIBAVIRIN
     Indication: HEPATIC CIRRHOSIS
     Route: 048
     Dates: start: 20140328, end: 20140403
  13. ALOSENN [Concomitant]
     Active Substance: SENNA LEAF
     Indication: HEPATIC CIRRHOSIS
     Route: 048
     Dates: start: 201401
  14. JANUVIA [Concomitant]
     Active Substance: SITAGLIPTIN PHOSPHATE
     Indication: HEPATIC CIRRHOSIS
     Route: 048
     Dates: start: 201401
  15. VELCADE [Suspect]
     Active Substance: BORTEZOMIB
     Route: 065
     Dates: start: 20140511, end: 20140511
  16. EVAMYL [Concomitant]
     Active Substance: LORMETAZEPAM
     Indication: INSOMNIA
     Route: 048
     Dates: start: 201301
  17. VELCADE [Suspect]
     Active Substance: BORTEZOMIB
     Route: 065
     Dates: start: 20140518, end: 20140518

REACTIONS (3)
  - Blood pressure decreased [Unknown]
  - Multiple organ dysfunction syndrome [Fatal]
  - Sepsis [Fatal]

NARRATIVE: CASE EVENT DATE: 20140519
